FAERS Safety Report 7693916-4 (Version None)
Quarter: 2011Q3

REPORT INFORMATION
  Report Type: 
  Country: None (occurrence: None)
  Receive Date: 20110819
  Receipt Date: 20101110
  Transmission Date: 20111222
  Serious: No
  Sender: FDA-Public Use
  Company Number: US-ALLERGAN-1014530US

PATIENT
  Age: 63 Year
  Sex: Female

DRUGS (3)
  1. FLUOROPLEX [Suspect]
     Indication: BASAL CELL CARCINOMA
     Dosage: 1 APPLICATION BID
     Route: 061
     Dates: start: 20101102, end: 20101108
  2. FLUOROPLEX [Suspect]
     Indication: PRURITUS
  3. FLUOROPLEX [Suspect]
     Indication: SQUAMOUS CELL CARCINOMA

REACTIONS (3)
  - SKIN HYPERTROPHY [None]
  - SKIN BURNING SENSATION [None]
  - RASH GENERALISED [None]
